FAERS Safety Report 6573847-3 (Version None)
Quarter: 2010Q1

REPORT INFORMATION
  Report Type: 
  Country: None (occurrence: None)
  Receive Date: 20100204
  Receipt Date: 20100204
  Transmission Date: 20100710
  Serious: Yes (Other)
  Sender: FDA-Public Use
  Company Number: None

PATIENT
  Age: 71 Year
  Sex: Male
  Weight: 101.1521 kg

DRUGS (3)
  1. FINASTERIDE [Suspect]
     Indication: INCONTINENCE
     Dosage: 5 MG DAILY ORAL
     Route: 048
     Dates: start: 20091230, end: 20100104
  2. FINASTERIDE [Suspect]
     Indication: LASER THERAPY
     Dosage: 5 MG DAILY ORAL
     Route: 048
     Dates: start: 20091230, end: 20100104
  3. FINASTERIDE [Suspect]
     Indication: PROSTATIC DISORDER
     Dosage: 5 MG DAILY ORAL
     Route: 048
     Dates: start: 20091230, end: 20100104

REACTIONS (7)
  - ATROPHY [None]
  - BLOOD TESTOSTERONE DECREASED [None]
  - GENITAL BURNING SENSATION [None]
  - GENITAL DISORDER MALE [None]
  - GYNAECOMASTIA [None]
  - SEXUAL DYSFUNCTION [None]
  - TESTICULAR PAIN [None]
